FAERS Safety Report 7912978-X (Version None)
Quarter: 2011Q4

REPORT INFORMATION
  Report Type: 
  Country: None (occurrence: None)
  Receive Date: 20111114
  Receipt Date: 20111107
  Transmission Date: 20120403
  Serious: Yes (Other)
  Sender: FDA-Public Use
  Company Number: IL-BAYER-2011-107518

PATIENT
  Age: 17 Year
  Sex: Female

DRUGS (2)
  1. YASMIN [Suspect]
     Dosage: UNK
     Dates: end: 20100101
  2. MIRENA [Suspect]
     Dosage: UNK
     Dates: start: 20110701, end: 20110101

REACTIONS (4)
  - PAIN [None]
  - GAIT DISTURBANCE [None]
  - DEVICE EXPULSION [None]
  - THROMBOSIS [None]
